FAERS Safety Report 8742229 (Version 2)
Quarter: 2012Q4

REPORT INFORMATION
  Report Type: 
  Country: DE (occurrence: DE)
  Receive Date: 20120824
  Receipt Date: 20120914
  Transmission Date: 20130627
  Serious: Yes (Other)
  Sender: FDA-Public Use
  Company Number: PHHY2012DE072514

PATIENT
  Sex: Male
  Weight: 70.7 kg

DRUGS (2)
  1. LEPONEX [Suspect]
     Indication: DEMENTIA
     Dosage: 50 mg per day
     Route: 048
     Dates: start: 20120626, end: 20120822
  2. TIAPRIDEX [Concomitant]
     Indication: RESTLESSNESS
     Dosage: 600 mg per day
     Route: 048
     Dates: start: 20120709

REACTIONS (2)
  - Lipase increased [Recovering/Resolving]
  - C-reactive protein increased [Unknown]
